FAERS Safety Report 7479048-9 (Version None)
Quarter: 2011Q2

REPORT INFORMATION
  Report Type: 
  Country: None (occurrence: None)
  Receive Date: 20110513
  Receipt Date: 20110428
  Transmission Date: 20111010
  Serious: Yes (Life-Threatening, Disabling)
  Sender: FDA-Public Use
  Company Number: US-JNJFOC-20100506593

PATIENT
  Age: 41 Year
  Sex: Female

DRUGS (10)
  1. RITUXAN [Suspect]
     Route: 042
  2. PREDNISONE [Suspect]
     Indication: DERMATOMYOSITIS
     Route: 048
  3. ACTONEL [Concomitant]
     Indication: PRODUCT USED FOR UNKNOWN INDICATION
  4. FOLATE [Concomitant]
     Indication: PRODUCT USED FOR UNKNOWN INDICATION
  5. RITUXAN [Suspect]
     Route: 042
  6. METHOTREXATE [Suspect]
     Indication: DERMATOMYOSITIS
     Route: 058
  7. HYDROCHLOROTHIAZIDE [Concomitant]
     Indication: PRODUCT USED FOR UNKNOWN INDICATION
  8. TRAMADOL HYDROCHLORIDE [Concomitant]
     Indication: PRODUCT USED FOR UNKNOWN INDICATION
  9. REMICADE [Suspect]
     Indication: DERMATOMYOSITIS
     Route: 042
  10. RITUXAN [Suspect]
     Indication: DERMATOMYOSITIS
     Route: 042

REACTIONS (1)
  - PROGRESSIVE MULTIFOCAL LEUKOENCEPHALOPATHY [None]
